FAERS Safety Report 4815901-X (Version None)
Quarter: 2005Q4

REPORT INFORMATION
  Report Type: 
  Country: None (occurrence: None)
  Receive Date: 20051031
  Receipt Date: 20051018
  Transmission Date: 20060501
  Serious: Yes (Death, Hospitalization)
  Sender: FDA-Public Use
  Company Number: ES-JNJFOC-20050203424

PATIENT
  Sex: Female

DRUGS (1)
  1. CAELYX [Suspect]
     Indication: OVARIAN CANCER
     Dosage: DAY 1
     Route: 042

REACTIONS (10)
  - ACUTE MYOCARDIAL INFARCTION [None]
  - ATRIOVENTRICULAR BLOCK COMPLETE [None]
  - CARDIOGENIC SHOCK [None]
  - CEREBRAL DISORDER [None]
  - EJECTION FRACTION DECREASED [None]
  - INTESTINAL OBSTRUCTION [None]
  - MUCOSAL INFLAMMATION [None]
  - MYOCARDIAL INFARCTION [None]
  - PANCYTOPENIA [None]
  - POOR PERIPHERAL CIRCULATION [None]
